FAERS Safety Report 18512478 (Version 1)
Quarter: 2020Q4

REPORT INFORMATION
  Report Type: Spontaneous
  Country: US (occurrence: US)
  Receive Date: 20201117
  Receipt Date: 20201117
  Transmission Date: 20210114
  Serious: Yes (Other)
  Sender: FDA-Public Use
  Company Number: US-LUPIN PHARMACEUTICALS INC.-2020-08981

PATIENT
  Age: 13 Month
  Sex: Male
  Weight: 7.9 kg

DRUGS (4)
  1. MIDAZOLAM. [Suspect]
     Active Substance: MIDAZOLAM
     Indication: PREMEDICATION
     Dosage: 4 MILLIGRAM, PREMEDICATION
     Route: 048
  2. EPINEPHRINE. [Suspect]
     Active Substance: EPINEPHRINE
     Indication: SPINAL ANAESTHESIA
     Dosage: UNK, 1:200000
  3. BUPIVACAINE. [Suspect]
     Active Substance: BUPIVACAINE
     Indication: SPINAL ANAESTHESIA
     Dosage: 5 MILLIGRAM
  4. CLONIDINE. [Suspect]
     Active Substance: CLONIDINE
     Indication: SPINAL ANAESTHESIA
     Dosage: 8 MICROGRAM (FORM: INJECTION)
     Route: 037

REACTIONS (3)
  - Loss of consciousness [Recovered/Resolved]
  - Corneal reflex decreased [Recovered/Resolved]
  - Areflexia [Recovered/Resolved]
